FAERS Safety Report 10903296 (Version 4)
Quarter: 2015Q2

REPORT INFORMATION
  Report Type: Spontaneous
  Country: US (occurrence: US)
  Receive Date: 20150311
  Receipt Date: 20150512
  Transmission Date: 20150821
  Serious: Yes (Death, Other)
  Sender: FDA-Public Use
  Company Number: US-BAUSCH-BL-2015-004087

PATIENT
  Age: 82 Year
  Sex: Female

DRUGS (1)
  1. XENAZINE [Suspect]
     Active Substance: TETRABENAZINE
     Indication: DYSKINESIA
     Route: 048
     Dates: start: 20140530, end: 20150327

REACTIONS (11)
  - Parkinsonism [Unknown]
  - Swollen tongue [Unknown]
  - Drug administration error [Unknown]
  - Decreased appetite [Unknown]
  - Agitation [Unknown]
  - Death [Fatal]
  - Movement disorder [Unknown]
  - Restlessness [Unknown]
  - Off label use [Recovered/Resolved]
  - Posture abnormal [Unknown]
  - Fall [Unknown]

NARRATIVE: CASE EVENT DATE: 20140530
